FAERS Safety Report 8136048-3 (Version None)
Quarter: 2012Q1

REPORT INFORMATION
  Report Type: 
  Country: None (occurrence: None)
  Receive Date: 20120214
  Receipt Date: 20110414
  Transmission Date: 20120608
  Serious: No
  Sender: FDA-Public Use
  Company Number: US-TEVA-277025USA

PATIENT
  Sex: Male

DRUGS (2)
  1. CROMOLYN SODIUM [Suspect]
     Indication: ASTHMA
     Dates: start: 20100401
  2. RANITIDINE HCL [Concomitant]

REACTIONS (1)
  - PEPTIC ULCER [None]
